FAERS Safety Report 13419070 (Version 4)
Quarter: 2018Q1

REPORT INFORMATION
  Report Type: Spontaneous
  Country: IT (occurrence: IT)
  Receive Date: 20170407
  Receipt Date: 20180308
  Transmission Date: 20180508
  Serious: Yes (Death, Other)
  Sender: FDA-Public Use
  Company Number: IT-ROCHE-1917020

PATIENT
  Age: 76 Year
  Sex: Male

DRUGS (5)
  1. LASIX [Concomitant]
     Active Substance: FUROSEMIDE
     Indication: HYPERTENSION
     Dosage: 25 MG TABLETS^ 30 TABLETS
     Route: 048
  2. ALMARYTM [Concomitant]
     Active Substance: FLECAINIDE ACETATE
     Indication: ATRIAL FIBRILLATION
     Dosage: 100 MG TABLETS 20 TABLETS
     Route: 048
  3. XELODA [Suspect]
     Active Substance: CAPECITABINE
     Indication: CARCINOID TUMOUR PULMONARY
     Dosage: 120 X 500 MG FILM-COATED TABLETS IN BLISTER PACK
     Route: 048
     Dates: start: 20170303, end: 20170315
  4. LEVOPRAID [Concomitant]
     Indication: PRODUCT USED FOR UNKNOWN INDICATION
     Route: 048
  5. CONGESCOR [Concomitant]
     Active Substance: BISOPROLOL
     Indication: CARDIAC FAILURE
     Dosage: 28 TABLETS IN A PVC/AL BLISTER PACK 3.75 MG
     Route: 048

REACTIONS (4)
  - Neutropenia [Fatal]
  - Diarrhoea [Fatal]
  - Neutropenia [Unknown]
  - Thrombocytopenia [Fatal]

NARRATIVE: CASE EVENT DATE: 20170315
